FAERS Safety Report 9633705 (Version 1)
Quarter: 2013Q4

REPORT INFORMATION
  Report Type: Spontaneous
  Country: GB (occurrence: None)
  Receive Date: 20131017
  Receipt Date: 20131017
  Transmission Date: 20140711
  Serious: Yes (Other)
  Sender: FDA-Public Use
  Company Number: 2013P1020064

PATIENT
  Age: 54 Year
  Sex: Female

DRUGS (1)
  1. AMLODIPINE [Suspect]
     Indication: HYPERTENSION

REACTIONS (3)
  - Rash [None]
  - Telangiectasia [None]
  - Idiosyncratic drug reaction [None]
